FAERS Safety Report 5207036-1 (Version None)
Quarter: 2007Q1

REPORT INFORMATION
  Report Type: 
  Country: None (occurrence: None)
  Receive Date: 20070112
  Receipt Date: 20070102
  Transmission Date: 20070707
  Serious: Yes (Death)
  Sender: FDA-Public Use
  Company Number: GB-BAYER-200710007BNE

PATIENT

DRUGS (8)
  1. NAPROXEN [Suspect]
     Indication: CANCER PAIN
  2. MORPHINE [Suspect]
     Indication: CANCER PAIN
     Route: 048
  3. ACETAMINOPHEN [Suspect]
  4. ALFENTANIL [Concomitant]
  5. FENTANYL TRANSDERMAL SYSTEM [Concomitant]
  6. OXYCODONE HCL [Concomitant]
  7. PAMIDRONATE DISODIUM [Concomitant]
  8. BUPIVACAINE [Concomitant]

REACTIONS (3)
  - DEATH [None]
  - DRUG INEFFECTIVE [None]
  - SOMNOLENCE [None]
